FAERS Safety Report 14035687 (Version 1)
Quarter: 2017Q4

REPORT INFORMATION
  Report Type: Spontaneous
  Country: US (occurrence: US)
  Receive Date: 20171003
  Receipt Date: 20171003
  Transmission Date: 20180321
  Serious: No
  Sender: FDA-Public Use
  Company Number: US-AMGEN-USASP2016140739

PATIENT
  Sex: Female

DRUGS (1)
  1. XGEVA [Suspect]
     Active Substance: DENOSUMAB
     Indication: PRODUCT USED FOR UNKNOWN INDICATION
     Dosage: UNK, UNK
     Route: 065

REACTIONS (6)
  - Tumour marker increased [Unknown]
  - Gait disturbance [Unknown]
  - Hepatic enzyme abnormal [Unknown]
  - Abdominal pain upper [Unknown]
  - Neuralgia [Unknown]
  - Back pain [Unknown]
